FAERS Safety Report 21343160 (Version 3)
Quarter: 2022Q3

REPORT INFORMATION
  Report Type: Spontaneous
  Country: PL (occurrence: PL)
  Receive Date: 20220916
  Receipt Date: 20220929
  Transmission Date: 20221027
  Serious: Yes (Other)
  Sender: FDA-Public Use
  Company Number: PL-UCBSA-2022052097

PATIENT
  Age: 70 Year
  Sex: Male

DRUGS (3)
  1. LEVETIRACETAM [Suspect]
     Active Substance: LEVETIRACETAM
     Indication: Status epilepticus
     Dosage: 60 MG/KG
  2. VALPROATE [Concomitant]
     Active Substance: VALPROIC ACID
     Dosage: 40 MG/KG
     Route: 042
  3. DIAZEPAM [Concomitant]
     Active Substance: DIAZEPAM
     Dosage: 20 MG
     Route: 042

REACTIONS (2)
  - Drug ineffective for unapproved indication [Unknown]
  - Off label use [Unknown]
